FAERS Safety Report 5176253-1 (Version None)
Quarter: 2006Q4

REPORT INFORMATION
  Report Type: 
  Country: None (occurrence: None)
  Receive Date: 20061215
  Receipt Date: 20061213
  Transmission Date: 20070319
  Serious: Yes (Hospitalization)
  Sender: FDA-Public Use
  Company Number: US-GLAXOSMITHKLINE-A0631526A

PATIENT
  Age: 38 Year
  Sex: Female

DRUGS (1)
  1. TUMS [Suspect]
     Indication: CHEST DISCOMFORT
     Route: 048

REACTIONS (6)
  - CARDIAC DISORDER [None]
  - CRYING [None]
  - DRUG INEFFECTIVE [None]
  - MYOCARDIAL INFARCTION [None]
  - NAUSEA [None]
  - PAIN IN EXTREMITY [None]
